FAERS Safety Report 5145729-5 (Version None)
Quarter: 2006Q4

REPORT INFORMATION
  Report Type: 
  Country: None (occurrence: None)
  Receive Date: 20060915
  Receipt Date: 20051205
  Transmission Date: 20070319
  Serious: Yes (Other)
  Sender: FDA-Public Use
  Company Number: 2005164337

PATIENT
  Age: 77 Year
  Sex: Male
  Weight: 72.5755 kg

DRUGS (10)
  1. GLUCOTROL XL [Suspect]
     Indication: DIABETES MELLITUS
     Dosage: 5 MG (5 MG,1 IN 1 D),ORAL
     Route: 048
     Dates: start: 20051004, end: 20051128
  2. COZAAR [Concomitant]
  3. FLOMAX [Concomitant]
  4. AVANDIA [Concomitant]
  5. TEVETEN [Concomitant]
  6. LIPITOR [Concomitant]
  7. SPIRIVA [Concomitant]
  8. FLOVENT [Concomitant]
  9. XALATAN [Concomitant]
  10. METFORMIN HCL [Concomitant]

REACTIONS (2)
  - BLOOD GLUCOSE INCREASED [None]
  - PANCYTOPENIA [None]
